FAERS Safety Report 15129846 (Version 1)
Quarter: 2018Q3

REPORT INFORMATION
  Report Type: Spontaneous
  Country: US (occurrence: US)
  Receive Date: 20180615
  Receipt Date: 20180615
  Transmission Date: 20181010
  Serious: No
  Sender: FDA-Public Use
  Company Number: None

PATIENT
  Age: 9 Year
  Sex: Female

DRUGS (6)
  1. DIASTAT ACDL GEL 5?1MG [Concomitant]
  2. PRILOSEC [Concomitant]
     Active Substance: OMEPRAZOLE MAGNESIUM
  3. ONFI [Concomitant]
     Active Substance: CLOBAZAM
  4. BANZEL 200MG [Concomitant]
  5. MULTI VIT CHEW 0.5MG [Concomitant]
  6. SABRIL [Suspect]
     Active Substance: VIGABATRIN
     Indication: LENNOX-GASTAUT SYNDROME
     Route: 048
     Dates: start: 20171011

REACTIONS (1)
  - Renal neoplasm [None]

NARRATIVE: CASE EVENT DATE: 20180614
